FAERS Safety Report 12707405 (Version 2)
Quarter: 2016Q3

REPORT INFORMATION
  Report Type: Spontaneous
  Country: US (occurrence: US)
  Receive Date: 20160901
  Receipt Date: 20160902
  Transmission Date: 20161109
  Serious: No
  Sender: FDA-Public Use
  Company Number: US-BAYER-2016-163882

PATIENT
  Age: 18 Year
  Sex: Male

DRUGS (2)
  1. CLARITIN REDITABS [Suspect]
     Active Substance: LORATADINE
     Indication: MULTIPLE ALLERGIES
     Dosage: 2 DF, ONCE
     Route: 048
     Dates: start: 20160821, end: 20160821
  2. CLARITIN REDITABS [Suspect]
     Active Substance: LORATADINE
     Indication: MULTIPLE ALLERGIES
     Dosage: 1 DF, QD
     Route: 048
     Dates: start: 20160820

REACTIONS (4)
  - Pain in extremity [None]
  - Drug ineffective [None]
  - Product use issue [Recovered/Resolved]
  - Sneezing [None]

NARRATIVE: CASE EVENT DATE: 20160821
